FAERS Safety Report 23499566 (Version 1)
Quarter: 2024Q1

REPORT INFORMATION
  Report Type: Other
  Country: NZ (occurrence: NZ)
  Receive Date: 20240208
  Receipt Date: 20240208
  Transmission Date: 20240410
  Serious: Yes (Other)
  Sender: FDA-Public Use
  Company Number: NZ-TASMAN PHARMA, INC.-2024TSM00030

PATIENT

DRUGS (3)
  1. CLOZAPINE [Suspect]
     Active Substance: CLOZAPINE
  2. UNSPECIFIED BRONCHODILATOR [Concomitant]
  3. RANITIDINE [Concomitant]
     Active Substance: RANITIDINE

REACTIONS (4)
  - Pulmonary oedema [Unknown]
  - Pulmonary embolism [Unknown]
  - Deep vein thrombosis [Unknown]
  - Lower respiratory tract infection [Unknown]
